FAERS Safety Report 8676913 (Version 2)
Quarter: 2013Q1

REPORT INFORMATION
  Report Type: Spontaneous
  Country: US (occurrence: US)
  Receive Date: 20120723
  Receipt Date: 20130220
  Transmission Date: 20140127
  Serious: Yes (Other)
  Sender: FDA-Public Use
  Company Number: US-BAYER-2012-071409

PATIENT
  Age: 27 Year
  Sex: Female
  Weight: 55.33 kg

DRUGS (1)
  1. MIRENA [Suspect]
     Indication: CONTRACEPTION
     Dosage: 20 MCG/24HR, CONT
     Route: 015
     Dates: start: 20090505, end: 2012

REACTIONS (9)
  - Abdominal distension [None]
  - Pain [None]
  - Dyspareunia [None]
  - Cyst [None]
  - Device dislocation [Not Recovered/Not Resolved]
  - Complication of device removal [Not Recovered/Not Resolved]
  - Device dislocation [None]
  - Abdominal pain [Recovered/Resolved]
  - Device misuse [Recovered/Resolved]
